FAERS Safety Report 17484367 (Version 1)
Quarter: 2020Q1

REPORT INFORMATION
  Report Type: Spontaneous
  Country: CA (occurrence: CA)
  Receive Date: 20200302
  Receipt Date: 20200302
  Transmission Date: 20200409
  Serious: Yes (Other)
  Sender: FDA-Public Use
  Company Number: CA-TEVA-2020-CA-1191207

PATIENT
  Age: 74 Year
  Sex: Female

DRUGS (23)
  1. PREGABALIN. [Concomitant]
     Active Substance: PREGABALIN
  2. SYNTHROID [Concomitant]
     Active Substance: LEVOTHYROXINE SODIUM
  3. TYLENOL 8HR [Concomitant]
     Active Substance: ACETAMINOPHEN
     Indication: ARTHRALGIA
  4. FUROSEMIDE. [Concomitant]
     Active Substance: FUROSEMIDE
  5. RABEPRAZOLE [Concomitant]
     Active Substance: RABEPRAZOLE
  6. SOLU-MEDROL [Concomitant]
     Active Substance: METHYLPREDNISOLONE SODIUM SUCCINATE
     Indication: PREMEDICATION
     Route: 042
  7. SULFASALAZINE. [Concomitant]
     Active Substance: SULFASALAZINE
  8. DIPHENHYDRAMINE. [Concomitant]
     Active Substance: DIPHENHYDRAMINE
     Indication: PREMEDICATION
     Route: 048
  9. NAPROSYN [Concomitant]
     Active Substance: NAPROXEN
  10. ORENCIA [Concomitant]
     Active Substance: ABATACEPT
     Route: 042
  11. ACETAMINOPHEN. [Concomitant]
     Active Substance: ACETAMINOPHEN
     Indication: PREMEDICATION
     Route: 048
  12. ASA [Concomitant]
     Active Substance: ASPIRIN
  13. PREDNISONE. [Concomitant]
     Active Substance: PREDNISONE
  14. RITUXIMAB. [Suspect]
     Active Substance: RITUXIMAB
     Indication: NEOPLASM MALIGNANT
  15. FOLIC ACID. [Concomitant]
     Active Substance: FOLIC ACID
  16. RITUXIMAB. [Suspect]
     Active Substance: RITUXIMAB
     Indication: RHEUMATOID ARTHRITIS
     Route: 042
  17. HYDROXYCHLOROQUINE [Concomitant]
     Active Substance: HYDROXYCHLOROQUINE
  18. POLYSACCHARIDE-IRON COMPLEX [Concomitant]
     Active Substance: FERRIC POLYSACCHARIDE COMPLEX
  19. FENTANYL. [Suspect]
     Active Substance: FENTANYL
     Indication: PRODUCT USED FOR UNKNOWN INDICATION
     Route: 065
  20. AMLODIPINE [Concomitant]
     Active Substance: AMLODIPINE BESYLATE
  21. ESOMEPRAZOLE. [Concomitant]
     Active Substance: ESOMEPRAZOLE MAGNESIUM
  22. HYDROMORPH CONTIN [Concomitant]
     Active Substance: HYDROMORPHONE
  23. LEFLUNOMIDE. [Concomitant]
     Active Substance: LEFLUNOMIDE

REACTIONS (20)
  - Blood pressure fluctuation [Unknown]
  - Injection site mass [Unknown]
  - Intentional product use issue [Unknown]
  - Mass [Unknown]
  - Off label use [Unknown]
  - Oxygen saturation decreased [Unknown]
  - Fall [Unknown]
  - Rheumatoid arthritis [Unknown]
  - Blood pressure increased [Unknown]
  - Blood pressure systolic abnormal [Unknown]
  - Blood pressure systolic increased [Unknown]
  - Dizziness [Unknown]
  - Heart rate increased [Unknown]
  - Hypotension [Unknown]
  - Infusion site extravasation [Unknown]
  - Ligament sprain [Unknown]
  - Tachycardia [Unknown]
  - Contusion [Unknown]
  - Injection site extravasation [Unknown]
  - Localised infection [Unknown]
